FAERS Safety Report 25498653 (Version 4)
Quarter: 2025Q3

REPORT INFORMATION
  Report Type: Spontaneous
  Country: US (occurrence: US)
  Receive Date: 20250701
  Receipt Date: 20250819
  Transmission Date: 20251021
  Serious: Yes (Disabling, Other)
  Sender: AMGEN
  Company Number: US-AMGEN-USASP2025127708

PATIENT
  Age: 77 Year
  Sex: Female
  Weight: 56 kg

DRUGS (40)
  1. TEPEZZA [Suspect]
     Active Substance: TEPROTUMUMAB-TRBW
     Indication: Endocrine ophthalmopathy
     Dosage: UNK, Q3WK (FIRST ROUND, FIRST INFUSION)
     Route: 040
     Dates: start: 20220321
  2. TEPEZZA [Suspect]
     Active Substance: TEPROTUMUMAB-TRBW
     Indication: Graves^ disease
     Dosage: UNK, Q3WK, (FIRST ROUND, FOURTH INFUSION)
     Route: 040
     Dates: start: 2022
  3. TEPEZZA [Suspect]
     Active Substance: TEPROTUMUMAB-TRBW
     Dosage: 1180 MILLIGRAM, Q3WK, (FIRST ROUND, FIFTH INFUSION)
     Route: 040
     Dates: start: 20220613
  4. TEPEZZA [Suspect]
     Active Substance: TEPROTUMUMAB-TRBW
     Dosage: UNK UNK, Q3WK,  (FIRST ROUND, SIXTH INFUSION)
     Route: 040
     Dates: start: 20220705
  5. TEPEZZA [Suspect]
     Active Substance: TEPROTUMUMAB-TRBW
     Dosage: 1140 MILLIGRAM, Q3WK, (FIRST ROUND, EIGHT INFUSION)
     Route: 040
     Dates: start: 20220823, end: 2023
  6. TEPEZZA [Suspect]
     Active Substance: TEPROTUMUMAB-TRBW
     Dosage: UNK UNK, Q3WK, (SECOND ROUND FIRST INFUSION)
     Route: 040
     Dates: start: 2023
  7. TEPEZZA [Suspect]
     Active Substance: TEPROTUMUMAB-TRBW
     Dosage: 1180 MILLIGRAM, Q3WK, (SECOND ROUND UNK INFUSION)
     Route: 040
     Dates: start: 20230410
  8. TEPEZZA [Suspect]
     Active Substance: TEPROTUMUMAB-TRBW
     Dosage: 1180 MILLIGRAM, Q3WK, (SECOND ROUND UNK INFUSION)
     Route: 040
     Dates: start: 20230913
  9. TEPEZZA [Suspect]
     Active Substance: TEPROTUMUMAB-TRBW
     Dosage: 1180 MILLIGRAM, Q3WK, (COMPLETED SECOND ROUND, EIGHT INFUSION)
     Route: 040
     Dates: start: 20231003
  10. PREDNISONE [Suspect]
     Active Substance: PREDNISONE
     Indication: Product used for unknown indication
     Route: 048
  11. STERILE WATER [Concomitant]
     Active Substance: WATER
     Dosage: UNK UNK, Q3WK
     Route: 040
  12. ADRENALIN [Concomitant]
     Active Substance: EPINEPHRINE
     Route: 065
     Dates: start: 2023, end: 20240410
  13. OMEGA-3 FATTY ACIDS [Concomitant]
     Active Substance: OMEGA-3 FATTY ACIDS
     Dosage: 100 MILLIGRAM, QD
     Route: 048
     Dates: start: 2023
  14. ASPIRIN [Concomitant]
     Active Substance: ASPIRIN
     Dosage: 81 MILLIGRAM, QD
     Route: 048
     Dates: start: 2023
  15. METOPROLOL TARTRATE [Concomitant]
     Active Substance: METOPROLOL TARTRATE
     Dosage: 12.5 MILLIGRAM, BID
     Route: 048
     Dates: start: 2023
  16. FLUOROMETHOLONE [Concomitant]
     Active Substance: FLUOROMETHOLONE
     Dosage: UNK UNK, QD
     Route: 047
  17. Artificial tears [Concomitant]
     Route: 065
  18. CALCIUM [Concomitant]
     Active Substance: CALCIUM
     Dosage: 600 MILLIGRAM, QD
     Route: 048
  19. VITAMINS [Concomitant]
     Active Substance: VITAMINS
     Dosage: UNK UNK, QD
     Route: 048
  20. ZINC [Concomitant]
     Active Substance: ZINC
     Dosage: 50 MILLIGRAM, QD
     Route: 048
  21. LEVOTHYROXINE [Concomitant]
     Active Substance: LEVOTHYROXINE
     Route: 065
  22. PROPRANOLOL HYDROCHLORIDE [Concomitant]
     Active Substance: PROPRANOLOL HYDROCHLORIDE
     Route: 065
  23. VITAMIN B12 [Concomitant]
     Active Substance: CYANOCOBALAMIN
     Route: 065
  24. ZYRTEC [Concomitant]
     Active Substance: CETIRIZINE HYDROCHLORIDE
     Route: 065
  25. ASCORBIC ACID [Concomitant]
     Active Substance: ASCORBIC ACID
     Dosage: 1000 MILLIGRAM, QD
     Route: 048
  26. Cholestoff plus [Concomitant]
  27. HERBALS\TURMERIC [Concomitant]
     Active Substance: HERBALS\TURMERIC
     Dosage: 1000 MILLIGRAM, QD
     Route: 048
  28. Luteina + zeaxantina [Concomitant]
     Dosage: UNK UNK, QD
     Route: 048
  29. REFRESH TEARS [Concomitant]
     Active Substance: CARBOXYMETHYLCELLULOSE SODIUM
     Route: 065
  30. OPCON-A [Concomitant]
     Active Substance: NAPHAZOLINE HYDROCHLORIDE\PHENIRAMINE MALEATE
     Route: 065
  31. SELENIUM [Concomitant]
     Active Substance: SELENIUM
     Route: 065
  32. POTASSIUM [Concomitant]
     Active Substance: POTASSIUM
     Route: 065
  33. TYRVAYA [Concomitant]
     Active Substance: VARENICLINE TARTRATE
     Route: 045
  34. Algal oil DHA [Concomitant]
     Route: 065
  35. DEMANNOSE [Concomitant]
     Active Substance: DEMANNOSE
     Route: 048
  36. IPRATROPIUM BROMIDE [Concomitant]
     Active Substance: IPRATROPIUM BROMIDE
     Route: 065
  37. RESTASIS [Concomitant]
     Active Substance: CYCLOSPORINE
     Route: 065
  38. XIIDRA [Concomitant]
     Active Substance: LIFITEGRAST
     Route: 065
  39. MAGNESIUM [Concomitant]
     Active Substance: MAGNESIUM
  40. SYNTHROID [Concomitant]
     Active Substance: LEVOTHYROXINE SODIUM
     Route: 065

REACTIONS (35)
  - Deafness neurosensory [Not Recovered/Not Resolved]
  - Endocrine ophthalmopathy [Unknown]
  - Graves^ disease [Unknown]
  - Pain [Unknown]
  - Emotional distress [Unknown]
  - Anxiety [Unknown]
  - Discomfort [Unknown]
  - Tinnitus [Not Recovered/Not Resolved]
  - Off label use [Unknown]
  - Product use complaint [Unknown]
  - Vision blurred [Unknown]
  - Contusion [Unknown]
  - Oral pain [Unknown]
  - Gingival recession [Unknown]
  - Myalgia [Unknown]
  - Dry mouth [Unknown]
  - Epistaxis [Unknown]
  - Dizziness [Unknown]
  - Hypertonic bladder [Unknown]
  - Wheezing [Recovered/Resolved]
  - Fall [Unknown]
  - Thyroid stimulating immunoglobulin increased [Unknown]
  - Blood thyroid stimulating hormone increased [Unknown]
  - Abdominal discomfort [Recovered/Resolved]
  - Hypertension [Unknown]
  - Rash [Unknown]
  - Urinary tract infection [Unknown]
  - COVID-19 [Unknown]
  - Ear discomfort [Unknown]
  - Blood glucose increased [Recovered/Resolved]
  - Muscle spasms [Not Recovered/Not Resolved]
  - Headache [Unknown]
  - Fatigue [Recovering/Resolving]
  - Dry skin [Unknown]
  - Diarrhoea [Recovered/Resolved]

NARRATIVE: CASE EVENT DATE: 20220301
